FAERS Safety Report 17125556 (Version 3)
Quarter: 2020Q1

REPORT INFORMATION
  Report Type: Spontaneous
  Country: US (occurrence: US)
  Receive Date: 20191207
  Receipt Date: 20200305
  Transmission Date: 20200409
  Serious: Yes (Hospitalization)
  Sender: FDA-Public Use
  Company Number: US-VERTEX PHARMACEUTICALS-2019-012279

PATIENT
  Age: 4 Year
  Sex: Male

DRUGS (5)
  1. CHOLECALCIFEROL [Concomitant]
     Active Substance: CHOLECALCIFEROL
     Dosage: 2.5 MILLILITER(1000 UNITS TOTAL), QD, 400 UNIT/ML
     Route: 048
     Dates: start: 20190215
  2. EPIPEN JR [Concomitant]
     Active Substance: EPINEPHRINE
     Dosage: 0.15/0.3 MG/ML, AS DIRECTED
     Route: 030
     Dates: start: 20190127
  3. EPINEPHRINE. [Concomitant]
     Active Substance: EPINEPHRINE
     Indication: ANAPHYLACTIC REACTION
     Dosage: UNK, ONE DEVICE (0.15MG TOTAL) ONCE AS NEEDED
     Route: 030
     Dates: start: 20161019
  4. KALYDECO [Suspect]
     Active Substance: IVACAFTOR
     Indication: CYSTIC FIBROSIS
     Dosage: 75 MG, BID
     Route: 048
     Dates: start: 201708
  5. PULMOZYME [Concomitant]
     Active Substance: DORNASE ALFA
     Dosage: 2.5 MG (ONE VIAL), QD, NEBULIZER
     Dates: start: 20190308

REACTIONS (2)
  - Adenovirus infection [Recovered/Resolved]
  - Respiratory tract infection viral [Recovered/Resolved]

NARRATIVE: CASE EVENT DATE: 20191109
